FAERS Safety Report 10502702 (Version 2)
Quarter: 2015Q2

REPORT INFORMATION
  Report Type: Spontaneous
  Country: US (occurrence: None)
  Receive Date: 20141003
  Receipt Date: 20150506
  Transmission Date: 20150821
  Serious: Yes (Other)
  Sender: FDA-Public Use
  Company Number: ADR-2014-01753

PATIENT
  Age: 5 Year
  Sex: Male

DRUGS (15)
  1. NASONEX [Suspect]
     Active Substance: MOMETASONE FUROATE
     Dosage: 1 SPRAY DAILY
  2. CLONIDINE. [Suspect]
     Active Substance: CLONIDINE
     Dosage: .1 CHANGED EVERY 28 DAYS
  3. LEVSIN [Suspect]
     Active Substance: HYOSCYAMINE SULFATE
  4. MOTRIN [Suspect]
     Active Substance: IBUPROFEN
  5. PREVACID [Suspect]
     Active Substance: LANSOPRAZOLE
  6. MIRALAX [Suspect]
     Active Substance: POLYETHYLENE GLYCOL 3350
     Dosage: 17 DAILY
  7. CLONAZEPAM. [Suspect]
     Active Substance: CLONAZEPAM
  8. FELBAMATE. [Suspect]
     Active Substance: FELBAMATE
     Dosage: 480 MG AT THE FOLLOWING TIMES: 0900 AND 1600
  9. TYLENOL [Suspect]
     Active Substance: ACETAMINOPHEN
  10. DEPAKENE [Suspect]
     Active Substance: VALPROIC ACID
  11. LIORESAL [Suspect]
     Active Substance: BACLOFEN
     Indication: MUSCLE SPASTICITY
     Dosage: 100 MCG/DAY
  12. ZOFRAN [Suspect]
     Active Substance: ONDANSETRON HYDROCHLORIDE
     Dosage: 3MG EVERY #6# AS NEEDED N/V
  13. HYCET [Suspect]
     Active Substance: ACETAMINOPHEN\HYDROCODONE BITARTRATE
     Dosage: AS NEEDED FOR SEVERE PAIN
  14. PULMICORT TURBUHALER [Suspect]
     Active Substance: BUDESONIDE
  15. ALBUTEROL. [Suspect]
     Active Substance: ALBUTEROL

REACTIONS (2)
  - No therapeutic response [None]
  - Rhinovirus infection [None]

NARRATIVE: CASE EVENT DATE: 20140701
